FAERS Safety Report 10219894 (Version 2)
Quarter: 2014Q2

REPORT INFORMATION
  Report Type: Spontaneous
  Country: GB (occurrence: GB)
  Receive Date: 20140605
  Receipt Date: 20140605
  Transmission Date: 20141212
  Serious: Yes (Hospitalization)
  Sender: FDA-Public Use
  Company Number: GB-BAXTER-2014BAX027375

PATIENT
  Age: 61 Year
  Sex: Female

DRUGS (2)
  1. SODIUM CHLORIDE INTRAVENOUS INFUSION BP 0.9%W/V [Suspect]
     Indication: OTITIS EXTERNA
     Route: 065
     Dates: start: 20140505, end: 20140527
  2. TAZOCIN [Suspect]
     Indication: OTITIS EXTERNA
     Route: 065
     Dates: start: 20140505, end: 20140527

REACTIONS (3)
  - Fall [Recovered/Resolved]
  - Hypersensitivity [Recovered/Resolved]
  - Pyrexia [Recovered/Resolved]
